FAERS Safety Report 23167072 (Version 1)
Quarter: 2023Q4

REPORT INFORMATION
  Report Type: Spontaneous
  Country: GB (occurrence: None)
  Receive Date: 20231109
  Receipt Date: 20231109
  Transmission Date: 20240110
  Serious: No
  Sender: FDA-Public Use
  Company Number: None

PATIENT
  Age: 60 Year
  Sex: Female
  Weight: 74.2 kg

DRUGS (1)
  1. PIZOTYLINE [Suspect]
     Active Substance: PIZOTYLINE
     Indication: Migraine
     Dosage: OTHER QUANTITY : 1 TABLET(S);?FREQUENCY : AT BEDTIME;?
     Route: 048
     Dates: start: 20230111, end: 20230711

REACTIONS (6)
  - Pain [None]
  - Arthralgia [None]
  - Gait disturbance [None]
  - Constipation [None]
  - Headache [None]
  - Tinnitus [None]

NARRATIVE: CASE EVENT DATE: 20230711
